FAERS Safety Report 9608430 (Version 1)
Quarter: 2013Q4

REPORT INFORMATION
  Report Type: Report from Study
  Country: US (occurrence: US)
  Receive Date: 20131009
  Receipt Date: 20131009
  Transmission Date: 20140711
  Serious: Yes (Other)
  Sender: FDA-Public Use
  Company Number: PHEH2013US020908

PATIENT
  Sex: Female

DRUGS (3)
  1. GILENYA [Suspect]
     Indication: MULTIPLE SCLEROSIS
     Dosage: 0.5 MG, QD
     Route: 048
     Dates: start: 20130604
  2. GABAPENTIN [Concomitant]
  3. SINGULAIR [Concomitant]
     Indication: SINUSITIS

REACTIONS (1)
  - Intervertebral disc degeneration [Not Recovered/Not Resolved]
